FAERS Safety Report 8386381-5 (Version None)
Quarter: 2012Q2

REPORT INFORMATION
  Report Type: 
  Country: None (occurrence: None)
  Receive Date: 20120525
  Receipt Date: 20120517
  Transmission Date: 20120825
  Serious: Yes (Hospitalization, Other)
  Sender: FDA-Public Use
  Company Number: JP-VERTEX PHARMACEUTICALS INC.-AE-2012-002423

PATIENT
  Age: 62 Year
  Sex: Male

DRUGS (17)
  1. REBETOL [Concomitant]
     Indication: HEPATITIS C
     Route: 048
     Dates: start: 20120210, end: 20120309
  2. REBETOL [Concomitant]
     Route: 048
     Dates: start: 20120310, end: 20120316
  3. REBETOL [Concomitant]
     Route: 048
     Dates: start: 20120326, end: 20120326
  4. REBETOL [Concomitant]
     Route: 048
     Dates: start: 20120419
  5. RIKKUNSHI-TO [Concomitant]
     Route: 048
     Dates: start: 20120217
  6. ZOLPIDEM [Concomitant]
     Route: 048
  7. TELAVIC (TELAPREVIR) [Suspect]
     Indication: HEPATITIS C
     Route: 048
     Dates: start: 20120210, end: 20120302
  8. MAGMITT [Concomitant]
     Route: 048
  9. TELAVIC (TELAPREVIR) [Suspect]
     Route: 048
     Dates: start: 20120303, end: 20120316
  10. PEG-INTRON [Concomitant]
     Indication: HEPATITIS C
     Route: 058
     Dates: start: 20120210
  11. GASMOTIN [Concomitant]
     Route: 048
     Dates: start: 20120213
  12. ALLOPURINOL [Concomitant]
     Route: 048
     Dates: start: 20120213
  13. BETAMAC [Concomitant]
     Route: 048
     Dates: start: 20120215
  14. CLOBETASOL PROPIONATE [Concomitant]
     Route: 061
     Dates: start: 20120217
  15. SEDEKOPAN [Concomitant]
     Route: 048
     Dates: start: 20120306, end: 20120316
  16. RABEPRAZOLE SODIUM [Concomitant]
     Route: 048
  17. GASTROM GRANULES [Concomitant]
     Route: 048

REACTIONS (7)
  - DEPRESSIVE SYMPTOM [None]
  - BLOOD URIC ACID INCREASED [None]
  - BLOOD CREATININE INCREASED [None]
  - RASH [None]
  - ANAEMIA [None]
  - DUODENAL ULCER [None]
  - DEPRESSION [None]
